FAERS Safety Report 8093065-X (Version None)
Quarter: 2012Q1

REPORT INFORMATION
  Report Type: 
  Country: None (occurrence: None)
  Receive Date: 20120128
  Receipt Date: 20110921
  Transmission Date: 20120608
  Serious: No
  Sender: FDA-Public Use
  Company Number: PR-ABBOTT-11P-131-0841675-00

PATIENT
  Sex: Male
  Weight: 74.456 kg

DRUGS (1)
  1. HUMIRA [Suspect]
     Indication: PRODUCT USED FOR UNKNOWN INDICATION
     Route: 058
     Dates: start: 20110401, end: 20110801

REACTIONS (2)
  - PULSE ABNORMAL [None]
  - ACNE CYSTIC [None]
